FAERS Safety Report 9408128 (Version 2)
Quarter: 2014Q2

REPORT INFORMATION
  Report Type: Report from Study
  Country: US (occurrence: US)
  Receive Date: 20130718
  Receipt Date: 20140401
  Transmission Date: 20141212
  Serious: Yes (Hospitalization)
  Sender: FDA-Public Use
  Company Number: US-ALEXION-A201301611

PATIENT
  Age: 23 Year
  Sex: Female
  Weight: 106.58 kg

DRUGS (23)
  1. ECULIZUMAB [Suspect]
     Indication: HAEMOLYTIC URAEMIC SYNDROME
     Dosage: 900 MG, QW X 4
     Route: 042
     Dates: start: 20090807
  2. ECULIZUMAB [Suspect]
     Dosage: 1200 MG, Q2W
     Route: 042
  3. VALCYTE [Concomitant]
     Dosage: 450 MG, QD
  4. ARANESP [Concomitant]
     Dosage: 100 ?G, QW
     Route: 058
  5. DIOVAN [Concomitant]
     Dosage: 160 MG, BID
  6. CLONIDINE [Concomitant]
     Dosage: 0.3 MG, TID
  7. COREG [Concomitant]
     Dosage: 25 MG, BID
  8. CARDIZEM CD [Concomitant]
     Dosage: 360 MG, QD
  9. LASIX [Concomitant]
     Dosage: 40 MG, QD
  10. HYDRALAZINE [Concomitant]
     Dosage: 50 MG, TID
  11. MINOXIDIL [Concomitant]
     Dosage: 2.5 MG, BID
  12. REGLAN [Concomitant]
     Dosage: 10 MG, Q.A.C.
     Route: 048
  13. ATIVAN [Concomitant]
     Dosage: 0.5 MG, TID PRN
  14. AMBIEN [Concomitant]
     Dosage: 10 MG, NIGHTLY PRN
  15. SODIUM BICARBONATE [Concomitant]
     Dosage: 1300 MG, TID
     Route: 048
  16. COLACE [Concomitant]
     Dosage: 100 MG, BID
  17. PRILOSEC [Concomitant]
     Dosage: 20 MG, BID
  18. PREDNISONE [Concomitant]
     Dosage: 10 MG, QD
  19. CELLCEPT [Concomitant]
     Dosage: 500 MG, BID
  20. PROGRAF [Concomitant]
     Dosage: 4.5 MG, BID
  21. SENSIPAR [Concomitant]
     Dosage: 60 MG, QD
  22. VITAMIN D [Concomitant]
     Dosage: 50000 IU, QW
     Route: 048
  23. CITALOPRAM [Concomitant]
     Dosage: 20 MG, QD

REACTIONS (1)
  - Renal impairment [Recovered/Resolved]
